FAERS Safety Report 7336129-8 (Version None)
Quarter: 2011Q1

REPORT INFORMATION
  Report Type: 
  Country: None (occurrence: None)
  Receive Date: 20110301
  Receipt Date: 20110301
  Transmission Date: 20110831
  Serious: Yes (Hospitalization)
  Sender: FDA-Public Use
  Company Number: None

PATIENT
  Age: 66 Year
  Sex: Male
  Weight: 86.2 kg

DRUGS (1)
  1. WARFARIN SODIUM [Suspect]
     Indication: INTRACARDIAC THROMBUS
     Dates: start: 20100917, end: 20110201

REACTIONS (3)
  - GASTRIC HAEMORRHAGE [None]
  - BLOOD PRESSURE DECREASED [None]
  - DIARRHOEA HAEMORRHAGIC [None]
